FAERS Safety Report 5935811-4 (Version None)
Quarter: 2008Q4

REPORT INFORMATION
  Report Type: 
  Country: None (occurrence: None)
  Receive Date: 20081030
  Receipt Date: 20081022
  Transmission Date: 20090506
  Serious: Yes (Other)
  Sender: FDA-Public Use
  Company Number: PHHY2008CA25639

PATIENT
  Sex: Female

DRUGS (1)
  1. SANDOSTATIN LAR [Suspect]
     Indication: GASTRIC MUCOSAL HYPERTROPHY
     Dosage: 10 MG EVERY FOUR WEEK
     Route: 030
     Dates: start: 20080729

REACTIONS (1)
  - AORTIC ANEURYSM [None]
